FAERS Safety Report 9959684 (Version 1)
Quarter: 2014Q1

REPORT INFORMATION
  Report Type: Spontaneous
  Country: US (occurrence: US)
  Receive Date: 20140305
  Receipt Date: 20140305
  Transmission Date: 20141002
  Serious: Yes (Other)
  Sender: FDA-Public Use
  Company Number: US-ABBVIE-13P-163-1102853-00

PATIENT
  Age: 50 Year
  Sex: Female

DRUGS (31)
  1. HUMIRA [Suspect]
     Indication: COLITIS ULCERATIVE
     Dates: start: 201008, end: 20121016
  2. NEULASTA [Suspect]
     Indication: PRODUCT USED FOR UNKNOWN INDICATION
     Dates: start: 201211
  3. ADRIAMYCIN [Suspect]
     Indication: INVASIVE DUCTAL BREAST CARCINOMA
     Dates: start: 20121123
  4. TAXOL [Suspect]
     Indication: INVASIVE DUCTAL BREAST CARCINOMA
     Dates: end: 20130411
  5. CYTOXAN [Suspect]
     Indication: INVASIVE DUCTAL BREAST CARCINOMA
     Dates: start: 20121123
  6. PREVACID [Concomitant]
     Indication: PRODUCT USED FOR UNKNOWN INDICATION
     Dosage: AM DAY
  7. PREVACID [Concomitant]
     Dosage: DELAYED RELEASE
  8. CRESTOR [Concomitant]
     Indication: PRODUCT USED FOR UNKNOWN INDICATION
  9. ASACOL [Concomitant]
     Indication: COLITIS ULCERATIVE
     Dates: start: 200907
  10. ASACOL [Concomitant]
  11. PREDNISONE [Concomitant]
     Indication: COLITIS ULCERATIVE
     Dates: start: 200907
  12. PREDNISONE [Concomitant]
  13. PREDNISONE [Concomitant]
     Route: 048
     Dates: start: 200910
  14. PREDNISONE [Concomitant]
     Route: 048
  15. PREDNISONE [Concomitant]
     Route: 048
     Dates: start: 200911
  16. PREDNISONE [Concomitant]
     Route: 048
     Dates: start: 201001
  17. PREDNISONE [Concomitant]
     Route: 048
  18. PREDNISONE [Concomitant]
     Route: 048
     Dates: start: 201002
  19. PREDNISONE [Concomitant]
  20. PREDNISONE [Concomitant]
  21. PREDNISONE [Concomitant]
     Dates: start: 201201
  22. PREDNISONE [Concomitant]
     Dates: start: 201202, end: 201206
  23. INTEGRA PLUS [Concomitant]
     Indication: MINERAL SUPPLEMENTATION
     Route: 048
     Dates: start: 200907
  24. INTEGRA PLUS [Concomitant]
     Route: 048
     Dates: start: 200911
  25. LIALDA [Concomitant]
     Indication: COLITIS ULCERATIVE
     Dates: start: 201006
  26. LIALDA [Concomitant]
     Dates: start: 201202, end: 201206
  27. LIALDA [Concomitant]
     Dates: start: 201207
  28. LIALDA [Concomitant]
  29. ADVIL [Concomitant]
     Indication: PRODUCT USED FOR UNKNOWN INDICATION
  30. PPD3 [Concomitant]
     Indication: EXPOSURE TO COMMUNICABLE DISEASE
     Dosage: SANOFI PASTEUR, LEFT ARM
     Route: 050
     Dates: start: 20120612, end: 20120612
  31. PNEUMOVAX [Concomitant]
     Indication: IMMUNISATION
     Dosage: HAD MANY YEARS AGO
     Dates: start: 20120105, end: 20120105

REACTIONS (26)
  - Invasive ductal breast carcinoma [Recovering/Resolving]
  - Memory impairment [Unknown]
  - Joint stiffness [Unknown]
  - Arthralgia [Unknown]
  - Colitis ulcerative [Unknown]
  - Nasopharyngitis [Unknown]
  - Arthralgia [Unknown]
  - Post procedural constipation [Unknown]
  - Fatigue [Unknown]
  - Exposure to communicable disease [Unknown]
  - Dizziness [Unknown]
  - Stress [Unknown]
  - Weight decreased [Unknown]
  - Chest pain [Unknown]
  - Alopecia [Unknown]
  - White blood cell count increased [Unknown]
  - Vertigo [Unknown]
  - Memory impairment [Unknown]
  - Hypoaesthesia [Unknown]
  - Vision blurred [Unknown]
  - Nail discolouration [Unknown]
  - Nail bed bleeding [Unknown]
  - Onychoclasis [Unknown]
  - Onychomadesis [Unknown]
  - Dry skin [Unknown]
  - Feeling abnormal [Unknown]
